FAERS Safety Report 15191812 (Version 1)
Quarter: 2018Q3

REPORT INFORMATION
  Report Type: Spontaneous
  Country: IN (occurrence: IN)
  Receive Date: 20180724
  Receipt Date: 20180724
  Transmission Date: 20181010
  Serious: Yes (Hospitalization, Other)
  Sender: FDA-Public Use
  Company Number: IN-SUNOVION-2018SUN002794

PATIENT
  Age: 29 Year
  Sex: Male

DRUGS (1)
  1. LURASIDONE HYDROCHLORIDE [Suspect]
     Active Substance: LURASIDONE HYDROCHLORIDE
     Indication: BIPOLAR DISORDER
     Dosage: 80 MG, QD
     Route: 048

REACTIONS (8)
  - Dyspepsia [Unknown]
  - Dyskinesia [Unknown]
  - Thrombocytopenia [Recovering/Resolving]
  - Hyperprolactinaemia [Unknown]
  - Vomiting [Unknown]
  - Gastritis [Recovering/Resolving]
  - Tremor [Unknown]
  - Extrapyramidal disorder [Recovering/Resolving]
